FAERS Safety Report 8261750-2 (Version None)
Quarter: 2012Q2

REPORT INFORMATION
  Report Type: 
  Country: None (occurrence: None)
  Receive Date: 20120405
  Receipt Date: 20120326
  Transmission Date: 20120825
  Serious: Yes (Other)
  Sender: FDA-Public Use
  Company Number: US-SANOFI-AVENTIS-2012SA018184

PATIENT
  Age: 63 Year
  Sex: Male
  Weight: 82 kg

DRUGS (7)
  1. MULTI-VITAMINS [Concomitant]
  2. CALCIUM CARBONATE [Concomitant]
  3. MULTAQ [Suspect]
     Route: 048
     Dates: start: 20110511, end: 20120313
  4. FISH OIL [Concomitant]
  5. ESOMEPRAZOLE [Concomitant]
  6. UROLOGICALS [Concomitant]
     Indication: BENIGN PROSTATIC HYPERPLASIA
  7. AVODART [Concomitant]
     Indication: BENIGN PROSTATIC HYPERPLASIA

REACTIONS (5)
  - HEPATOCELLULAR INJURY [None]
  - CHOLECYSTITIS [None]
  - ABDOMINAL PAIN [None]
  - BLOOD BILIRUBIN INCREASED [None]
  - CHOLELITHIASIS [None]
